FAERS Safety Report 24797036 (Version 1)
Quarter: 2025Q1

REPORT INFORMATION
  Report Type: Spontaneous
  Country: ES (occurrence: ES)
  Receive Date: 20250101
  Receipt Date: 20250101
  Transmission Date: 20250408
  Serious: Yes (Hospitalization)
  Sender: JOHNSON AND JOHNSON
  Company Number: ES-SANDOZ-SDZ2024ES104609

PATIENT
  Age: 30 Year
  Sex: Female

DRUGS (5)
  1. TOPIRAMATE [Suspect]
     Active Substance: TOPIRAMATE
     Indication: Eating disorder
     Dosage: 50 MG, QD, AT NIGHT
     Route: 048
  2. FLUOXETINE [Suspect]
     Active Substance: FLUOXETINE HYDROCHLORIDE
     Indication: Eating disorder
     Dosage: 40 MG, QD, IN THE MORNING
     Route: 065
  3. MIFEPRISTONE [Concomitant]
     Active Substance: MIFEPRISTONE
     Indication: Abortion induced
  4. MIFEPRISTONE [Concomitant]
     Active Substance: MIFEPRISTONE
  5. MIFEPRISTONE [Concomitant]
     Active Substance: MIFEPRISTONE
     Dosage: 400 UG, Q3H, WITH THE PATIENT RECEIVING THREE DOSES IN  TOTAL

REACTIONS (2)
  - Abortion induced [Unknown]
  - Maternal exposure during pregnancy [Unknown]
